FAERS Safety Report 10199800 (Version 1)
Quarter: 2014Q2

REPORT INFORMATION
  Report Type: Spontaneous
  Country: FR (occurrence: FR)
  Receive Date: 20140527
  Receipt Date: 20140527
  Transmission Date: 20141212
  Serious: Yes (Other)
  Sender: FDA-Public Use
  Company Number: FR-GE HEALTHCARE MEDICAL DIAGNOSTICS-OMPQ-PR-1405S-0516

PATIENT
  Age: 57 Year
  Sex: Female
  Weight: 70 kg

DRUGS (3)
  1. OMNIPAQUE [Suspect]
     Indication: PRURITUS
     Route: 042
     Dates: start: 20140429, end: 20140429
  2. OMNIPAQUE [Suspect]
     Indication: DIAGNOSTIC PROCEDURE
  3. ANTIHISTAMINIC [Concomitant]

REACTIONS (1)
  - Erythema [Recovered/Resolved]
